FAERS Safety Report 6543649-2 (Version None)
Quarter: 2010Q1

REPORT INFORMATION
  Report Type: 
  Country: None (occurrence: None)
  Receive Date: 20100120
  Receipt Date: 20100105
  Transmission Date: 20100710
  Serious: Yes (Other)
  Sender: FDA-Public Use
  Company Number: GB-MERCK-0702GBR00100

PATIENT
  Age: 68 Year
  Sex: Male
  Weight: 78 kg

DRUGS (14)
  1. ZETIA [Suspect]
     Route: 048
  2. ACIPIMOX [Suspect]
     Route: 065
  3. AMIODARONE [Suspect]
     Indication: ATRIAL FIBRILLATION
     Route: 065
  4. AMIODARONE [Suspect]
     Indication: CARDIAC MURMUR
     Route: 065
  5. ASPIRIN [Suspect]
     Indication: FEELING ABNORMAL
     Route: 065
  6. ASPIRIN [Suspect]
     Indication: LEFT VENTRICULAR DYSFUNCTION
     Route: 065
  7. BISOPROLOL [Suspect]
     Indication: PARAESTHESIA
     Route: 065
  8. BISOPROLOL [Suspect]
     Indication: VENOUS PRESSURE JUGULAR
     Route: 065
  9. DIGOXIN [Suspect]
     Route: 065
  10. FUROSEMIDE [Suspect]
     Indication: VENTRICULAR TACHYCARDIA
     Route: 065
  11. FUROSEMIDE [Suspect]
     Route: 065
  12. LANSOPRAZOLE [Suspect]
     Route: 065
  13. PERINDOPRIL [Suspect]
     Route: 065
  14. ASPIRIN [Suspect]
     Indication: OEDEMA PERIPHERAL
     Route: 065

REACTIONS (17)
  - ATRIAL FIBRILLATION [None]
  - CARDIAC MURMUR [None]
  - DIPLOPIA [None]
  - DISSOCIATION [None]
  - DIZZINESS [None]
  - DRUG INEFFECTIVE [None]
  - DYSPNOEA [None]
  - DYSPNOEA EXERTIONAL [None]
  - FATIGUE [None]
  - FEELING ABNORMAL [None]
  - LEFT VENTRICULAR DYSFUNCTION [None]
  - LEFT VENTRICULAR FAILURE [None]
  - OEDEMA PERIPHERAL [None]
  - PARAESTHESIA [None]
  - SHOCK [None]
  - VENOUS PRESSURE JUGULAR INCREASED [None]
  - VENTRICULAR TACHYCARDIA [None]
